FAERS Safety Report 24759351 (Version 1)
Quarter: 2024Q4

REPORT INFORMATION
  Report Type: Spontaneous
  Country: US (occurrence: US)
  Receive Date: 20241220
  Receipt Date: 20241220
  Transmission Date: 20250115
  Serious: No
  Sender: BRAEBURN PHARMACEUTICALS
  Company Number: US-BRAEBURN-US-BRA-24-000932

PATIENT
  Sex: Female

DRUGS (2)
  1. BRIXADI [Suspect]
     Active Substance: BUPRENORPHINE
     Indication: Drug dependence
     Dosage: 24 MILLIGRAM, WEEKLY
     Route: 058
     Dates: start: 202408
  2. BRIXADI [Suspect]
     Active Substance: BUPRENORPHINE
     Indication: Generalised anxiety disorder

REACTIONS (5)
  - Abdominal distension [Unknown]
  - Skin discolouration [Unknown]
  - Blister [Unknown]
  - Scar [Unknown]
  - Product use in unapproved indication [Unknown]
